FAERS Safety Report 14326672 (Version 1)
Quarter: 2017Q4

REPORT INFORMATION
  Report Type: Spontaneous
  Country: US (occurrence: US)
  Receive Date: 20171227
  Receipt Date: 20171227
  Transmission Date: 20180321
  Serious: No
  Sender: FDA-Public Use
  Company Number: US-TEVA-2017-US-839254

PATIENT
  Sex: Male

DRUGS (4)
  1. SERTRALINE [Concomitant]
     Active Substance: SERTRALINE HYDROCHLORIDE
     Dosage: STARTED MANY YEARS AGO, ONGOING
  2. LISINOPRIL. [Concomitant]
     Active Substance: LISINOPRIL
     Dosage: STARTED MANY YEARS AGO, ONGOING
  3. FLUOCINONIDE. [Suspect]
     Active Substance: FLUOCINONIDE
     Indication: PRURITUS
     Dosage: 0.05%. 60GRAM
     Route: 061
  4. SIMVASTATIN. [Concomitant]
     Active Substance: SIMVASTATIN
     Dosage: STARTED MANY YEARS AGO,ONGOING

REACTIONS (1)
  - Skin burning sensation [Recovered/Resolved]
